FAERS Safety Report 5470271-1 (Version None)
Quarter: 2007Q3

REPORT INFORMATION
  Report Type: 
  Country: None (occurrence: None)
  Receive Date: 20070924
  Receipt Date: 20070917
  Transmission Date: 20080115
  Serious: Yes (Other)
  Sender: FDA-Public Use
  Company Number: 163-21880-07090841

PATIENT
  Age: 60 Year
  Sex: Female

DRUGS (4)
  1. REVLIMID [Suspect]
     Indication: MULTIPLE MYELOMA
     Dosage: 25 MG, ON 3 WEEKS, OFF 1 WEEK, ORAL
     Route: 048
     Dates: start: 20070603
  2. DEXAMETHASONE [Suspect]
     Indication: MULTIPLE MYELOMA
     Dosage: 20 MG, TWICE A WEEK, 3 WEEKS ON AND 1 WEEK OFF, ORAL
     Route: 048
     Dates: start: 20070603
  3. ZOMETA [Concomitant]
  4. CALCIUM (CALCIUM) [Concomitant]

REACTIONS (8)
  - ANXIETY [None]
  - DRY EYE [None]
  - EMOTIONAL DISORDER [None]
  - EYE PAIN [None]
  - HALLUCINATION [None]
  - INSOMNIA [None]
  - LOGORRHOEA [None]
  - VISION BLURRED [None]
